FAERS Safety Report 5512971-0 (Version None)
Quarter: 2007Q4

REPORT INFORMATION
  Report Type: 
  Country: None (occurrence: None)
  Receive Date: 20071112
  Receipt Date: 20071102
  Transmission Date: 20080405
  Serious: Yes (Other)
  Sender: FDA-Public Use
  Company Number: JP-AMGEN-US224229

PATIENT
  Sex: Female
  Weight: 41 kg

DRUGS (6)
  1. ENBREL [Suspect]
     Indication: RHEUMATOID ARTHRITIS
     Route: 058
     Dates: start: 20060623, end: 20060929
  2. ENBREL [Suspect]
     Route: 058
     Dates: start: 20061117, end: 20070406
  3. SELBEX [Concomitant]
  4. MEDROL [Concomitant]
     Indication: RHEUMATOID ARTHRITIS
     Route: 048
     Dates: start: 20060929, end: 20061008
  5. HIRUDOID [Concomitant]
     Dosage: UNSPECIFIED JEL
  6. FLURBIPROFEN [Concomitant]
     Indication: RHEUMATOID ARTHRITIS
     Dosage: UNSPECIFIED TAP

REACTIONS (1)
  - PULMONARY TUBERCULOSIS [None]
